FAERS Safety Report 7653186-X (Version None)
Quarter: 2011Q3

REPORT INFORMATION
  Report Type: 
  Country: None (occurrence: None)
  Receive Date: 20110803
  Receipt Date: 20110726
  Transmission Date: 20111222
  Serious: No
  Sender: FDA-Public Use
  Company Number: US-BAYER-2011-066394

PATIENT
  Age: 68 Year
  Sex: Female

DRUGS (2)
  1. ADALAT CC [Suspect]
     Indication: HYPERTENSION
     Dosage: UNK
     Route: 048
     Dates: start: 20100101
  2. ADALAT CC [Suspect]
     Dosage: UNK
     Route: 048
     Dates: start: 20110401

REACTIONS (2)
  - ALOPECIA EFFLUVIUM [None]
  - OEDEMA PERIPHERAL [None]
